FAERS Safety Report 19825463 (Version 4)
Quarter: 2021Q4

REPORT INFORMATION
  Report Type: Spontaneous
  Country: US (occurrence: US)
  Receive Date: 20210914
  Receipt Date: 20211129
  Transmission Date: 20220303
  Serious: Yes (Other)
  Sender: FDA-Public Use
  Company Number: US-NOVOPROD-845213

PATIENT
  Sex: Male

DRUGS (2)
  1. NOVOLIN 70/30 [Suspect]
     Active Substance: INSULIN HUMAN
     Indication: Product used for unknown indication
     Dosage: UNK
     Route: 058
  2. NOVOLIN 70/30 [Suspect]
     Active Substance: INSULIN HUMAN
     Dosage: UNK
     Route: 058

REACTIONS (8)
  - Renal disorder [Unknown]
  - Eye disorder [Unknown]
  - Confusional state [Unknown]
  - Limb injury [Not Recovered/Not Resolved]
  - Diabetes mellitus inadequate control [Not Recovered/Not Resolved]
  - Product quality issue [Not Recovered/Not Resolved]
  - Blood glucose increased [Unknown]
  - Blood glucose decreased [Unknown]

NARRATIVE: CASE EVENT DATE: 20201201
